FAERS Safety Report 6826024-2 (Version None)
Quarter: 2010Q3

REPORT INFORMATION
  Report Type: 
  Country: None (occurrence: None)
  Receive Date: 20100708
  Receipt Date: 20100708
  Transmission Date: 20110219
  Serious: No
  Sender: FDA-Public Use
  Company Number: None

PATIENT
  Sex: Female

DRUGS (1)
  1. PRISMASATE WITH K -NO CA- GAMBRO [Suspect]

REACTIONS (2)
  - MEDICATION ERROR [None]
  - PRODUCT LABEL CONFUSION [None]
